FAERS Safety Report 14240276 (Version 1)
Quarter: 2017Q4

REPORT INFORMATION
  Report Type: Spontaneous
  Country: US (occurrence: US)
  Receive Date: 20171129
  Receipt Date: 20171129
  Transmission Date: 20180321
  Serious: No
  Sender: FDA-Public Use
  Company Number: None

PATIENT
  Sex: Female
  Weight: 45 kg

DRUGS (12)
  1. CARNITINE [Concomitant]
     Active Substance: CARNITINE
  2. N-ACETYL-L-CYSTEINE [Concomitant]
     Active Substance: ACETYLCYSTEINE
  3. VITAMIN B COMPLEX [Concomitant]
     Active Substance: CYANOCOBALAMIN\DEXPANTHENOL\NIACINAMIDE\PYRIDOXINE HYDROCHLORIDE\RIBOFLAVIN 5^-PHOSPHATE SODIUM\THIAMINE HYDROCHLORIDE\VITAMIN B COMPLEX
  4. SAMETEROL XINAFOATE/FLUTICASONE PROPPIONATE [Concomitant]
     Active Substance: FLUTICASONE PROPIONATE\SALMETEROL XINAFOATE
  5. T3 [Concomitant]
     Active Substance: LIOTHYRONINE SODIUM
  6. VITAMIN K [Concomitant]
     Active Substance: PHYTONADIONE
  7. COENZYME Q 10 [Concomitant]
  8. LUTEIN [Concomitant]
     Active Substance: LUTEIN
  9. SEPTOCAINE [Suspect]
     Active Substance: ARTICAINE HYDROCHLORIDE\EPINEPHRINE BITARTRATE
     Indication: TOOTH EXTRACTION
     Dosage: ?          OTHER ROUTE:DENTAL INJECTION?
     Dates: start: 20171128, end: 20171128
  10. SALMON CALCITONIN [Concomitant]
  11. VITAMIN D [Concomitant]
     Active Substance: CHOLECALCIFEROL
  12. T4 [Concomitant]
     Active Substance: LEVOTHYROXINE

REACTIONS (7)
  - Vomiting projectile [None]
  - Blood pressure decreased [None]
  - Heart rate decreased [None]
  - Extrasystoles [None]
  - Rhinalgia [None]
  - Oesophageal pain [None]
  - Abdominal pain upper [None]

NARRATIVE: CASE EVENT DATE: 20171128
